FAERS Safety Report 10594340 (Version 11)
Quarter: 2015Q3

REPORT INFORMATION
  Report Type: Spontaneous
  Country: US (occurrence: US)
  Receive Date: 20141119
  Receipt Date: 20150812
  Transmission Date: 20151125
  Serious: No
  Sender: FDA-Public Use
  Company Number: US-PFIZER INC-2014293697

PATIENT
  Age: 58 Year
  Sex: Female

DRUGS (7)
  1. DEPO-MEDROL [Suspect]
     Active Substance: METHYLPREDNISOLONE ACETATE
     Indication: DIZZINESS
     Dosage: UNK
     Dates: start: 201410, end: 201410
  2. DIAZEPAM. [Concomitant]
     Active Substance: DIAZEPAM
     Indication: DIZZINESS
     Dosage: 5 MG (1/2-1 TAB), QHS
     Route: 048
     Dates: start: 20141215, end: 20150114
  3. ANTIVERT [Concomitant]
     Active Substance: MECLIZINE HYDROCHLORIDE
     Indication: DIZZINESS
     Dosage: 1 TAB, 3X/DAY
     Route: 048
     Dates: start: 20140808, end: 20140907
  4. DEPO-MEDROL [Suspect]
     Active Substance: METHYLPREDNISOLONE ACETATE
     Indication: VERTIGO
     Dosage: 80 MG/1ML,1 TIME DOSE
     Route: 030
     Dates: start: 20140910, end: 20140910
  5. VALIUM [Concomitant]
     Active Substance: DIAZEPAM
     Dosage: UNK
     Dates: start: 201501
  6. DYAZIDE [Concomitant]
     Active Substance: HYDROCHLOROTHIAZIDE\TRIAMTERENE
     Indication: DIZZINESS
     Dosage: HYDROCHLOROTHIAZIDE 37.5MG/ TRIAMTERENE 25MG (1 TAB), Q AM
     Route: 048
     Dates: start: 20141020, end: 20141119
  7. DEPO-MEDROL [Suspect]
     Active Substance: METHYLPREDNISOLONE ACETATE
     Indication: DIZZINESS

REACTIONS (6)
  - Paraesthesia [Not Recovered/Not Resolved]
  - Burning sensation [Not Recovered/Not Resolved]
  - Hypoaesthesia [Not Recovered/Not Resolved]
  - Off label use [Unknown]
  - Breast pain [Recovered/Resolved]
  - Pain in extremity [Not Recovered/Not Resolved]

NARRATIVE: CASE EVENT DATE: 20140925
